FAERS Safety Report 20318649 (Version 2)
Quarter: 2022Q1

REPORT INFORMATION
  Report Type: Spontaneous
  Country: None (occurrence: GB)
  Receive Date: 20220110
  Receipt Date: 20220128
  Transmission Date: 20220423
  Serious: Yes (Death, Life-Threatening, Other)
  Sender: FDA-Public Use
  Company Number: GB-Breckenridge Pharmaceutical, Inc.-2123771

PATIENT
  Age: 76 Year
  Sex: Male
  Weight: 69 kg

DRUGS (20)
  1. OMEPRAZOLE [Suspect]
     Active Substance: OMEPRAZOLE
     Route: 048
  2. CLARITHROMYCIN [Suspect]
     Active Substance: CLARITHROMYCIN
  3. TACROLIMUS [Suspect]
     Active Substance: TACROLIMUS
  4. ALLOPURINOL [Concomitant]
     Active Substance: ALLOPURINOL
  5. BETAHISTINE [Concomitant]
     Active Substance: BETAHISTINE
  6. CHOLECALCIFEROL [Concomitant]
     Active Substance: CHOLECALCIFEROL
  7. DEXTROSE [Concomitant]
     Active Substance: DEXTROSE
  8. DOXYCYCLINE [Concomitant]
     Active Substance: DOXYCYCLINE
  9. BISOPROLOL. [Suspect]
     Active Substance: BISOPROLOL FUMARATE
  10. CEFUROXIME [Suspect]
     Active Substance: CEFUROXIME
  11. DEXTROSE [Suspect]
     Active Substance: DEXTROSE
  12. SENNOSIDES [Suspect]
     Active Substance: SENNOSIDES
  13. EPLERENONE [Concomitant]
     Active Substance: EPLERENONE
  14. FUROSEMIDE [Concomitant]
     Active Substance: FUROSEMIDE
  15. GLICLAZIDE [Concomitant]
     Active Substance: GLICLAZIDE
  16. GLUCAGON [Concomitant]
     Active Substance: GLUCAGON
  17. NITROGLYCERIN [Concomitant]
     Active Substance: NITROGLYCERIN
  18. HYDROCORTISONE (HYDROCORTISONE ACETATE) [Concomitant]
     Active Substance: HYDROCORTISONE ACETATE
  19. PREDNISOLONE [Concomitant]
     Active Substance: PREDNISOLONE
  20. ALBUTEROL [Concomitant]
     Active Substance: ALBUTEROL

REACTIONS (23)
  - Drug interaction [Fatal]
  - Cardiac failure congestive [Fatal]
  - Myocardial ischaemia [Fatal]
  - Pneumonia [Fatal]
  - Acute kidney injury [Fatal]
  - Oesophageal carcinoma [Fatal]
  - Immunosuppressant drug level increased [Fatal]
  - Transplant failure [Fatal]
  - Pyrexia [Fatal]
  - Haemoptysis [Fatal]
  - Lower respiratory tract infection [Fatal]
  - Swelling [Fatal]
  - Rales [Fatal]
  - Dyspnoea [Fatal]
  - Pleural effusion [Fatal]
  - Lung consolidation [Fatal]
  - Superinfection [Fatal]
  - Sepsis [Fatal]
  - Soft tissue mass [Fatal]
  - Inflammatory marker increased [Fatal]
  - Malaise [Fatal]
  - Ascites [Fatal]
  - Multimorbidity [Fatal]
